FAERS Safety Report 4872126-X (Version None)
Quarter: 2005Q4

REPORT INFORMATION
  Report Type: 
  Country: None (occurrence: None)
  Receive Date: 20051230
  Receipt Date: 20051219
  Transmission Date: 20060501
  Serious: Yes (Death)
  Sender: FDA-Public Use
  Company Number: 2005171322

PATIENT
  Age: 70 Year
  Sex: Male

DRUGS (1)
  1. ZOLOFT [Suspect]
     Indication: MAJOR DEPRESSION
     Dosage: 50 MG (50 MG, 1 IN 1 D)

REACTIONS (2)
  - INJURY ASPHYXIATION [None]
  - MUSCULAR WEAKNESS [None]
